FAERS Safety Report 5872395-3 (Version None)
Quarter: 2008Q3

REPORT INFORMATION
  Report Type: 
  Country: None (occurrence: None)
  Receive Date: 20080905
  Receipt Date: 20080826
  Transmission Date: 20090109
  Serious: Yes (Hospitalization)
  Sender: FDA-Public Use
  Company Number: TW-TYCO HEALTHCARE/MALLINCKRODT-T200801423

PATIENT

DRUGS (1)
  1. LIQUID BAROSPERSE [Suspect]
     Indication: SCAN
     Route: 050

REACTIONS (1)
  - APPENDICITIS [None]
